FAERS Safety Report 8156130-4 (Version None)
Quarter: 2012Q1

REPORT INFORMATION
  Report Type: 
  Country: None (occurrence: None)
  Receive Date: 20120222
  Receipt Date: 20120213
  Transmission Date: 20120608
  Serious: Yes (Hospitalization)
  Sender: FDA-Public Use
  Company Number: US-JNJFOC-20120113111

PATIENT
  Sex: Female
  Weight: 61.24 kg

DRUGS (7)
  1. PLAVIX [Concomitant]
     Indication: COAGULOPATHY
     Route: 048
  2. TOPAMAX [Suspect]
     Route: 048
     Dates: end: 20120129
  3. SYNTHROID [Concomitant]
     Indication: THYROID THERAPY
     Route: 048
     Dates: start: 20040101
  4. TOPAMAX [Suspect]
     Route: 048
  5. LIPITOR [Concomitant]
     Indication: BLOOD CHOLESTEROL
     Route: 048
     Dates: start: 20030101
  6. TOPAMAX [Suspect]
     Indication: CONVULSION
     Route: 048
     Dates: start: 20060101
  7. PREMARIN [Concomitant]
     Indication: CARDIAC DISORDER
     Route: 048

REACTIONS (2)
  - INTESTINAL MASS [None]
  - MEDICATION ERROR [None]
